FAERS Safety Report 9835051 (Version 1)
Quarter: 2014Q1

REPORT INFORMATION
  Report Type: Spontaneous
  Country: US (occurrence: US)
  Receive Date: 20140122
  Receipt Date: 20140122
  Transmission Date: 20141002
  Serious: Yes (Hospitalization)
  Sender: FDA-Public Use
  Company Number: US-ROXANE LABORATORIES, INC.-2014-RO-00063RO

PATIENT
  Age: 70 Year
  Sex: Female

DRUGS (11)
  1. DEXAMETHASONE [Suspect]
     Indication: PLASMA CELL MYELOMA
     Dosage: 40 MG
     Route: 048
     Dates: start: 20131213
  2. LENALIDOMIDE [Suspect]
     Indication: PLASMA CELL MYELOMA
     Dosage: 25 MG
     Route: 048
     Dates: start: 20131213
  3. NEXIUM [Concomitant]
     Dates: start: 2013
  4. LASIX [Concomitant]
     Dates: start: 20131116
  5. LOVASTATIN [Concomitant]
     Dates: start: 2003
  6. AMOXICILLIN [Concomitant]
     Dates: start: 20131209
  7. ALBUTEROL [Concomitant]
     Dates: start: 20131209
  8. ASPIRIN [Concomitant]
     Dates: start: 1973
  9. METOPROLOL [Concomitant]
     Dates: start: 2007
  10. PERCOCET [Concomitant]
     Dates: start: 20131116
  11. POTASSIUM [Concomitant]
     Dates: start: 20131116

REACTIONS (1)
  - Pneumonia [Unknown]
